FAERS Safety Report 15731363 (Version 1)
Quarter: 2018Q4

REPORT INFORMATION
  Report Type: Spontaneous
  Country: US (occurrence: US)
  Receive Date: 20181217
  Receipt Date: 20181217
  Transmission Date: 20190205
  Serious: Yes (Other)
  Sender: FDA-Public Use
  Company Number: US-SHIRE-US201848353

PATIENT
  Sex: Male

DRUGS (1)
  1. VONVENDI [Suspect]
     Active Substance: VON WILLEBRAND FACTOR (RECOMBINANT)
     Indication: PRODUCT USED FOR UNKNOWN INDICATION
     Dosage: 3000 ?G, PLUS OR MINUS 10% AS NEEDED ON DEMAND
     Route: 065

REACTIONS (3)
  - Inappropriate schedule of product administration [Unknown]
  - Rectal haemorrhage [Unknown]
  - Product reconstitution quality issue [Unknown]
